FAERS Safety Report 7242757-0 (Version None)
Quarter: 2011Q1

REPORT INFORMATION
  Report Type: 
  Country: None (occurrence: None)
  Receive Date: 20110125
  Receipt Date: 20110119
  Transmission Date: 20110831
  Serious: Yes (Hospitalization)
  Sender: FDA-Public Use
  Company Number: ES-SHIRE-SPV1-2011-00065

PATIENT
  Age: 73 Year
  Sex: Female

DRUGS (3)
  1. CLAVERSAL [Concomitant]
     Indication: COLITIS ULCERATIVE
     Dosage: 2 DF, 3X/DAY:TID
     Dates: end: 20101203
  2. MEZAVANT [Suspect]
     Indication: COLITIS ULCERATIVE
     Dosage: UNK UNK, UNKNOWN
     Route: 065
     Dates: start: 20101203
  3. PREDNISONE [Suspect]
     Indication: COLITIS ULCERATIVE
     Dosage: 45 MG, 1X/DAY:QD
     Dates: start: 20101101

REACTIONS (1)
  - ENCEPHALITIS HERPES [None]
